FAERS Safety Report 8396771-2 (Version None)
Quarter: 2012Q1

REPORT INFORMATION
  Report Type: 
  Country: None (occurrence: None)
  Receive Date: 20120323
  Receipt Date: 20110517
  Transmission Date: 20120608
  Serious: Yes (Hospitalization, Other)
  Sender: FDA-Public Use
  Company Number: 163-21880-11042254

PATIENT
  Age: 83 Year
  Sex: Male
  Weight: 74.8 kg

DRUGS (14)
  1. ASPIRIN [Concomitant]
  2. OMEPRAZOLE [Concomitant]
  3. FUROSEMIDE [Concomitant]
  4. POTASSIUM CHLORIDE [Concomitant]
  5. AMITRIPTYLINE HCL [Concomitant]
  6. LEVOXYL [Concomitant]
  7. MIRALAX [Concomitant]
  8. CALCIUM CARBONATE [Concomitant]
  9. DILTIAZEM [Concomitant]
  10. COLACE (DOCUSATE SODIUM) [Concomitant]
  11. REVLIMID [Suspect]
     Indication: MYELOMA RECURRENCE
     Dosage: 25 MG, DAILY FOR 21 DAYS ON THEN 7 DAYS OFF, PO, 25 MG, DAILY FOR 21 DAYS ON THEN 7 DAYS OFF, PO
     Route: 048
     Dates: start: 20110228, end: 20110101
  12. REVLIMID [Suspect]
     Indication: MYELOMA RECURRENCE
     Dosage: 25 MG, DAILY FOR 21 DAYS ON THEN 7 DAYS OFF, PO, 25 MG, DAILY FOR 21 DAYS ON THEN 7 DAYS OFF, PO
     Route: 048
     Dates: start: 20110411
  13. B COMPLEX ELX [Concomitant]
  14. VITAMIN D [Concomitant]

REACTIONS (4)
  - MALAISE [None]
  - DEHYDRATION [None]
  - RASH [None]
  - PNEUMONIA [None]
